FAERS Safety Report 14424369 (Version 3)
Quarter: 2020Q1

REPORT INFORMATION
  Report Type: Spontaneous
  Country: US (occurrence: US)
  Receive Date: 20180123
  Receipt Date: 20200130
  Transmission Date: 20200409
  Serious: No
  Sender: FDA-Public Use
  Company Number: US-009507513-1801USA007812

PATIENT
  Sex: Female

DRUGS (1)
  1. NEXPLANON [Suspect]
     Active Substance: ETONOGESTREL
     Dosage: 68 MG, 1 IMPLANT EVERY 3 YEARS
     Route: 059

REACTIONS (3)
  - No adverse event [Unknown]
  - Device difficult to use [Unknown]
  - Device malfunction [Unknown]
